FAERS Safety Report 7011018-7 (Version None)
Quarter: 2010Q3

REPORT INFORMATION
  Report Type: 
  Country: None (occurrence: None)
  Receive Date: 20100923
  Receipt Date: 20081107
  Transmission Date: 20110219
  Serious: Yes (Other)
  Sender: FDA-Public Use
  Company Number: US-WYE-H06378208

PATIENT
  Sex: Female
  Weight: 70.82 kg

DRUGS (6)
  1. EFFEXOR XR [Suspect]
     Indication: DEPRESSION
     Route: 048
     Dates: start: 20080108, end: 20081003
  2. CONJUGATED ESTROGENS [Concomitant]
     Indication: MENOPAUSE
     Route: 048
     Dates: start: 20060101
  3. VITAMINS WITH MINERALS [Concomitant]
     Dosage: UNKNOWN
     Route: 048
     Dates: start: 20060101
  4. CALCIUM [Concomitant]
     Indication: OSTEOPENIA
     Route: 048
     Dates: start: 20060101
  5. LIPITOR [Concomitant]
     Indication: BLOOD CHOLESTEROL INCREASED
     Route: 048
     Dates: start: 20060101
  6. SYNTHROID [Concomitant]
     Indication: HYPOTHYROIDISM
     Dosage: 88 MCG DAILY
     Route: 048
     Dates: start: 20060101

REACTIONS (1)
  - BLOOD PRESSURE INCREASED [None]
